FAERS Safety Report 5475916-8 (Version None)
Quarter: 2007Q4

REPORT INFORMATION
  Report Type: 
  Country: None (occurrence: None)
  Receive Date: 20071001
  Receipt Date: 20070913
  Transmission Date: 20080405
  Serious: Yes (Other)
  Sender: FDA-Public Use
  Company Number: S07-CAN-05144-01

PATIENT
  Sex: Female

DRUGS (3)
  1. CELEXA [Suspect]
  2. ATIVAN [Suspect]
  3. ZYPREXA [Suspect]

REACTIONS (4)
  - APGAR SCORE LOW [None]
  - DRUG EXPOSURE DURING PREGNANCY [None]
  - MECONIUM INCREASED [None]
  - SOMNOLENCE NEONATAL [None]
